FAERS Safety Report 6522358-X (Version None)
Quarter: 2009Q4

REPORT INFORMATION
  Report Type: 
  Country: None (occurrence: None)
  Receive Date: 20091229
  Receipt Date: 20091229
  Transmission Date: 20100525
  Serious: Yes (Hospitalization)
  Sender: FDA-Public Use
  Company Number: None

PATIENT
  Sex: Male
  Weight: 129 kg

DRUGS (16)
  1. BENZTROPINE MESYLATE [Suspect]
     Indication: EXTRAPYRAMIDAL DISORDER
     Dosage: 0.5MG PO Q 12H
     Route: 048
     Dates: start: 20090901, end: 20091013
  2. BENZTROPINE MESYLATE [Suspect]
     Indication: WITHDRAWAL SYNDROME
     Dosage: 0.5MG PO Q 12H
     Route: 048
     Dates: start: 20090901, end: 20091013
  3. METHADONE HCL [Suspect]
     Indication: PAIN
     Dosage: 100MG PO ONCE DAILY
     Route: 048
     Dates: start: 20090901, end: 20091013
  4. ASPIRIN [Concomitant]
  5. CITALOPRAM HYDROBROMIDE [Concomitant]
  6. DIVALPROEX SODIUM [Concomitant]
  7. FENOFIBRATE [Suspect]
  8. ADVAIR DISKUS 100/50 [Concomitant]
  9. HEPARIN [Concomitant]
  10. HYDROXYZINE [Concomitant]
  11. NICOTINE [Concomitant]
  12. PEG [Concomitant]
  13. PREVACID [Suspect]
  14. RISPERIDONE [Suspect]
  15. SPIRONOLACTONE [Concomitant]
  16. SPIRIVA [Concomitant]

REACTIONS (1)
  - CONSTIPATION [None]
